FAERS Safety Report 6056811-2 (Version None)
Quarter: 2009Q1

REPORT INFORMATION
  Report Type: 
  Country: None (occurrence: None)
  Receive Date: 20090129
  Receipt Date: 20090119
  Transmission Date: 20090719
  Serious: Yes (Other)
  Sender: FDA-Public Use
  Company Number: GB-PFIZER INC-2009153834

PATIENT

DRUGS (4)
  1. CYCLOPHOSPHAMIDE [Suspect]
     Indication: LUPUS NEPHRITIS
     Route: 042
     Dates: start: 20020101
  2. PREDNISOLONE AND PREDNISOLONE STEAGLATE [Suspect]
     Indication: LUPUS NEPHRITIS
  3. AZATHIOPRINE [Suspect]
     Indication: SYSTEMIC LUPUS ERYTHEMATOSUS
     Dosage: 100 MG, 1X/DAY
  4. MYCOPHENOLIC ACID [Suspect]
     Indication: LUPUS NEPHRITIS

REACTIONS (4)
  - BRONCHITIS CHRONIC [None]
  - IMMUNODEFICIENCY [None]
  - LUPUS NEPHRITIS [None]
  - RESPIRATORY DISORDER [None]
